FAERS Safety Report 8004974-1 (Version None)
Quarter: 2011Q4

REPORT INFORMATION
  Report Type: 
  Country: None (occurrence: None)
  Receive Date: 20111223
  Receipt Date: 20111219
  Transmission Date: 20120403
  Serious: Yes (Hospitalization)
  Sender: FDA-Public Use
  Company Number: GB-JNJFOC-20111209179

PATIENT
  Age: 84 Year
  Sex: Male
  Weight: 77.1 kg

DRUGS (7)
  1. ZIMOVANE [Concomitant]
     Indication: SLEEP DISORDER
     Route: 048
     Dates: start: 20111117
  2. SYMBICORT [Concomitant]
     Indication: ASTHMA
     Route: 055
  3. TRAMADOL HCL [Concomitant]
     Indication: PAIN
     Route: 048
     Dates: start: 20111118
  4. ORAMORPH SR [Concomitant]
     Indication: PAIN
     Dates: start: 20111116, end: 20111117
  5. ONDANSETRON [Concomitant]
     Route: 048
     Dates: start: 20111116
  6. XARELTO [Suspect]
     Indication: PROPHYLAXIS
     Route: 048
     Dates: start: 20111116, end: 20111119
  7. SIMVASTATIN [Concomitant]
     Indication: BLOOD CHOLESTEROL INCREASED
     Route: 048

REACTIONS (3)
  - FATIGUE [None]
  - NAUSEA [None]
  - DIZZINESS [None]
